FAERS Safety Report 10691438 (Version 2)
Quarter: 2015Q1

REPORT INFORMATION
  Report Type: Spontaneous
  Country: FR (occurrence: FR)
  Receive Date: 20150105
  Receipt Date: 20150112
  Transmission Date: 20150720
  Serious: Yes (Other)
  Sender: FDA-Public Use
  Company Number: FR-PFIZER INC-2014361664

PATIENT
  Age: 53 Year
  Sex: Male

DRUGS (2)
  1. PIROXICAM. [Suspect]
     Active Substance: PIROXICAM
     Indication: TENDONITIS
     Dosage: UNK
     Route: 023
  2. PROCAINE [Suspect]
     Active Substance: PROCAINE
     Indication: TENDONITIS
     Dosage: UNK
     Route: 023

REACTIONS (2)
  - Embolia cutis medicamentosa [Recovered/Resolved]
  - Drug administered at inappropriate site [Recovered/Resolved]

NARRATIVE: CASE EVENT DATE: 201206
